FAERS Safety Report 21108752 (Version 2)
Quarter: 2022Q3

REPORT INFORMATION
  Report Type: Report from Study
  Country: ES (occurrence: ES)
  Receive Date: 20220721
  Receipt Date: 20220819
  Transmission Date: 20221027
  Serious: Yes (Other)
  Sender: FDA-Public Use
  Company Number: None

PATIENT
  Age: 50 Year
  Sex: Female

DRUGS (5)
  1. AJOVY [Suspect]
     Active Substance: FREMANEZUMAB-VFRM
     Indication: Migraine
     Dosage: 1 PRE-FILLED SYRINGE OF 1.5 ML, UNIT DOSE AND STRENGTH :225 MG,  DURATION :85 DAYS, FREQUENCY TIME :
     Route: 065
     Dates: start: 20210701, end: 20210923
  2. NAPROXEN [Concomitant]
     Active Substance: NAPROXEN
     Indication: Migraine
     Dosage: NAPROXEN (2002A), UNIT DOSE : 750MG, FREQUENCY TIME : 1 DAY
     Route: 065
     Dates: start: 201712
  3. TRAMADOL HYDROCHLORIDE [Concomitant]
     Active Substance: TRAMADOL HYDROCHLORIDE
     Indication: Migraine
     Dosage: TRAMADOL HYDROCHLORIDE (2389CH), UNIT DOSE : 150MG, FREQUENCY TIME : 1 DAY
     Dates: start: 201706
  4. IBUPROFEN [Concomitant]
     Active Substance: IBUPROFEN
     Indication: Migraine
     Dosage: ESPIDIFEN 600 MG GRANULES FOR COLA-LEMON FLAVOR ORAL SOLUTION, 20 SACHETS, UNIT DOSE : 1800MG, FREQU
     Dates: start: 201910
  5. LEVOTHYROXINE SODIUM [Concomitant]
     Active Substance: LEVOTHYROXINE SODIUM
     Indication: Hypothyroidism
     Dosage: 100 TABLETS, UNIT DOSE AND STRENGTH :50MCG, FREQUENCY TIME : 1 DAY
     Dates: start: 202006

REACTIONS (4)
  - Dizziness [Recovered/Resolved]
  - Vomiting [Recovered/Resolved]
  - Paraesthesia [Recovered/Resolved]
  - Nausea [Recovered/Resolved]

NARRATIVE: CASE EVENT DATE: 20210702
